FAERS Safety Report 20089585 (Version 1)
Quarter: 2021Q4

REPORT INFORMATION
  Report Type: Spontaneous
  Country: US (occurrence: US)
  Receive Date: 20211119
  Receipt Date: 20211119
  Transmission Date: 20220304
  Serious: No
  Sender: FDA-Public Use
  Company Number: ALC2021US001083

PATIENT

DRUGS (1)
  1. MIOSTAT [Suspect]
     Active Substance: CARBACHOL
     Indication: Product used for unknown indication
     Dosage: UNK
     Route: 065

REACTIONS (1)
  - Foreign body in eye [Unknown]
